FAERS Safety Report 8054092-1 (Version None)
Quarter: 2012Q1

REPORT INFORMATION
  Report Type: 
  Country: None (occurrence: None)
  Receive Date: 20120118
  Receipt Date: 20120111
  Transmission Date: 20120608
  Serious: Yes (Hospitalization)
  Sender: FDA-Public Use
  Company Number: PHHY2011GB104363

PATIENT
  Sex: Female

DRUGS (2)
  1. OMEPRAZOLE [Suspect]
     Indication: GASTROOESOPHAGEAL REFLUX DISEASE
     Dosage: 10 MG, DAILY DOSE
     Route: 048
     Dates: start: 20111030
  2. OMEPRAZOLE [Suspect]
     Dosage: 20 MG, DAILY DOSE
     Route: 048

REACTIONS (4)
  - ILEAL STENOSIS [None]
  - DEHYDRATION [None]
  - DIARRHOEA [None]
  - VOMITING [None]
